FAERS Safety Report 9916386 (Version 1)
Quarter: 2014Q1

REPORT INFORMATION
  Report Type: Spontaneous
  Country: US (occurrence: None)
  Receive Date: 20140220
  Receipt Date: 20140220
  Transmission Date: 20141002
  Serious: No
  Sender: FDA-Public Use
  Company Number: None

PATIENT
  Age: 80 Year
  Sex: Male
  Weight: 71.22 kg

DRUGS (1)
  1. ATORVASTATIN [Suspect]

REACTIONS (6)
  - Abdominal pain [None]
  - Pain [None]
  - Nausea [None]
  - Chromaturia [None]
  - Sleep disorder [None]
  - Eating disorder [None]
